FAERS Safety Report 23709123 (Version 2)
Quarter: 2024Q2

REPORT INFORMATION
  Report Type: Spontaneous
  Country: US (occurrence: US)
  Receive Date: 20240404
  Receipt Date: 20240513
  Transmission Date: 20240716
  Serious: No
  Sender: FDA-Public Use
  Company Number: US-002147023-NVSC2024US072289

PATIENT
  Age: 54 Year
  Sex: Female
  Weight: 65.8 kg

DRUGS (20)
  1. CLOFAZIMINE [Suspect]
     Active Substance: CLOFAZIMINE
     Indication: Mycobacterial infection
     Dosage: 100 MG
     Route: 048
     Dates: end: 20240315
  2. TYLENOL [Concomitant]
     Active Substance: ACETAMINOPHEN
     Indication: Pain
     Dosage: 650 MG, TID (TOME 1 TABLETA POR BOCA CADA 8 HORAS CUANDO SEA NECESARIO PARA DOLOR MODERADO)
     Route: 065
     Dates: start: 20240119
  3. ALBUTEROL [Concomitant]
     Active Substance: ALBUTEROL
     Indication: Wheezing
     Dosage: UNK, QID (2 PUFFS EVERY 6 HOURS AS NEEDED )
     Route: 065
     Dates: start: 20210815
  4. ALBUTEROL [Concomitant]
     Active Substance: ALBUTEROL
     Indication: Dyspnoea
  5. NORVASC [Concomitant]
     Active Substance: AMLODIPINE BESYLATE
     Indication: Product used for unknown indication
     Dosage: 1 DOSAGE FORM, QD
     Route: 048
     Dates: start: 20240216
  6. ASPIRIN [Concomitant]
     Active Substance: ASPIRIN
     Indication: Product used for unknown indication
     Dosage: 81 MG, QD
     Route: 048
     Dates: start: 20230105, end: 20240430
  7. FLEXERIL [Concomitant]
     Active Substance: CYCLOBENZAPRINE HYDROCHLORIDE
     Indication: Muscle spasms
     Dosage: 5 MG (AT BEDTIME AS NEEDED)
     Route: 048
     Dates: start: 20230901
  8. VALIUM [Concomitant]
     Active Substance: DIAZEPAM
     Indication: Muscle spasms
     Dosage: 5 MG, QID (IF NEEDDED)
     Route: 048
     Dates: start: 20231130
  9. PEPCID [Concomitant]
     Active Substance: FAMOTIDINE
     Indication: Product used for unknown indication
     Dosage: 40 MG, QD
     Route: 048
     Dates: start: 20230901
  10. FLONASE [Concomitant]
     Active Substance: FLUTICASONE PROPIONATE
     Indication: Product used for unknown indication
     Dosage: UNK, QD (ADMINISTER 1 SPRAY INTO EACH NOSTRIL DAILY)
     Route: 065
     Dates: start: 20230818
  11. LEVAQUIN [Concomitant]
     Active Substance: LEVOFLOXACIN
     Indication: Atypical mycobacterial infection
     Dosage: 750 MG, QD
     Route: 048
     Dates: start: 20240110, end: 20240410
  12. LIDOCAINE [Concomitant]
     Active Substance: LIDOCAINE
     Indication: Product used for unknown indication
     Dosage: UNK, QD (APPLY 1 PATCH TOPICALLY DAILY)
     Route: 061
     Dates: start: 20230329
  13. ZYVOX [Concomitant]
     Active Substance: LINEZOLID
     Indication: Atypical mycobacterial infection
     Dosage: 600 MG, QD
     Route: 048
     Dates: start: 20231129, end: 20240328
  14. ZOFRAN [Concomitant]
     Active Substance: ONDANSETRON HYDROCHLORIDE
     Indication: Nausea
     Dosage: 4 MG, QID (AS NEEDED, ODT, DISINTEGRATING TABLET)
     Route: 048
     Dates: start: 20240207
  15. ZOFRAN [Concomitant]
     Active Substance: ONDANSETRON HYDROCHLORIDE
     Indication: Vomiting
  16. CRESTOR [Concomitant]
     Active Substance: ROSUVASTATIN CALCIUM
     Indication: Product used for unknown indication
     Dosage: 5 MG (AT BEDTIME)
     Route: 048
     Dates: start: 20230425
  17. CARAFATE [Concomitant]
     Active Substance: SUCRALFATE
     Indication: Product used for unknown indication
     Dosage: 10 ML (1 G TOTAL) BY MOUTH BEFORE MEALS AND AT BEDTIME)
     Route: 048
  18. ADVIL [Concomitant]
     Active Substance: IBUPROFEN
     Indication: Pain
     Dosage: 800 MG, TID (AS NEEDED)
     Route: 048
  19. MIRALAX [Concomitant]
     Active Substance: POLYETHYLENE GLYCOL 3350
     Indication: Product used for unknown indication
     Dosage: UNK (1 CAPFUL WITH FULL GLASS OF WATER2 OR 3 TIMES DAILY UNTIL BM)
     Route: 065
  20. KETOROLAC TROMETHAMINE [Concomitant]
     Active Substance: KETOROLAC TROMETHAMINE
     Indication: Product used for unknown indication
     Dosage: 30 MG
     Route: 065

REACTIONS (8)
  - Product use issue [Recovered/Resolved]
  - Vision blurred [Unknown]
  - Epigastric discomfort [Unknown]
  - Vertigo [Unknown]
  - Cough [Unknown]
  - Dizziness [Unknown]
  - Dry skin [Unknown]
  - Constipation [Unknown]

NARRATIVE: CASE EVENT DATE: 20240229
